FAERS Safety Report 5969656-6 (Version None)
Quarter: 2008Q4

REPORT INFORMATION
  Report Type: 
  Country: None (occurrence: None)
  Receive Date: 20081126
  Receipt Date: 20080917
  Transmission Date: 20090506
  Serious: No
  Sender: FDA-Public Use
  Company Number: US-ABBOTT-08P-163-0476866-00

PATIENT
  Sex: Male
  Weight: 93.978 kg

DRUGS (12)
  1. SIMCOR [Suspect]
     Indication: BLOOD TRIGLYCERIDES INCREASED
     Dosage: 1 PILL AT BEDTIME
     Dates: start: 20080822
  2. SITAGLIPTIN PHOSPHATE [Concomitant]
     Indication: DIABETES MELLITUS
     Route: 048
  3. GLIPIZIDE [Concomitant]
     Indication: DIABETES MELLITUS
     Route: 048
  4. CARVEDILOL [Concomitant]
     Indication: DRUG USE FOR UNKNOWN INDICATION
     Route: 048
  5. BENICAR HCT [Concomitant]
     Indication: DRUG USE FOR UNKNOWN INDICATION
     Dosage: 40/25 DAILY
     Route: 048
  6. POTASSIUM CHLORIDE [Concomitant]
     Indication: DRUG USE FOR UNKNOWN INDICATION
     Route: 048
  7. EZETIMIBE [Concomitant]
     Indication: DRUG USE FOR UNKNOWN INDICATION
     Route: 048
  8. AMLODIPINE BESYLATE [Concomitant]
     Indication: HYPERTENSION
     Route: 048
  9. PIOGLITAZONE HYDROCHLORIDE [Concomitant]
     Indication: DIABETES MELLITUS
     Route: 048
  10. ASCORBIC ACID [Concomitant]
     Indication: DRUG USE FOR UNKNOWN INDICATION
     Route: 048
  11. FISH OIL [Concomitant]
     Indication: DRUG USE FOR UNKNOWN INDICATION
     Route: 048
  12. ACETYLSALICYLIC ACID SRT [Concomitant]
     Indication: DRUG USE FOR UNKNOWN INDICATION
     Route: 048

REACTIONS (1)
  - BLOOD GLUCOSE FLUCTUATION [None]
